FAERS Safety Report 23450377 (Version 1)
Quarter: 2024Q1

REPORT INFORMATION
  Report Type: Spontaneous
  Country: US (occurrence: US)
  Receive Date: 20240129
  Receipt Date: 20240129
  Transmission Date: 20240409
  Serious: Yes (Death, Other)
  Sender: FDA-Public Use
  Company Number: US-DRL-USA-LIT/USA/24/0001399

PATIENT
  Age: 63 Year
  Sex: Male

DRUGS (5)
  1. DECITABINE [Suspect]
     Active Substance: DECITABINE
     Indication: Myelodysplastic syndrome
  2. DECITABINE [Suspect]
     Active Substance: DECITABINE
     Indication: Myeloproliferative neoplasm
  3. DECITABINE [Suspect]
     Active Substance: DECITABINE
     Indication: Neutrophilia
  4. AZACITIDINE [Suspect]
     Active Substance: AZACITIDINE
     Indication: Acute myeloid leukaemia
  5. VENETOCLAX [Suspect]
     Active Substance: VENETOCLAX
     Indication: Acute myeloid leukaemia

REACTIONS (2)
  - Disease progression [Fatal]
  - Treatment failure [Fatal]
